FAERS Safety Report 8557533-6 (Version None)
Quarter: 2012Q3

REPORT INFORMATION
  Report Type: 
  Country: None (occurrence: None)
  Receive Date: 20120801
  Receipt Date: 20120730
  Transmission Date: 20120928
  Serious: Yes (Other)
  Sender: FDA-Public Use
  Company Number: US-PFIZER INC-2012123774

PATIENT
  Sex: Female
  Weight: 58.957 kg

DRUGS (8)
  1. ZOLOFT [Suspect]
     Dosage: 150 MG, DAILY
  2. CELEXA [Suspect]
     Indication: DEPRESSION
     Dosage: UNK
     Dates: start: 20111001, end: 20110101
  3. ZOLOFT [Suspect]
     Indication: DEPRESSION
     Dosage: 150 MG, DAILY
     Dates: start: 20100101, end: 20111001
  4. BELLADONNA EXTRACT [Concomitant]
     Indication: IRRITABLE BOWEL SYNDROME
     Dosage: UNK, 3X/DAY
  5. LEVOTHYROXINE [Concomitant]
     Indication: THYROID DISORDER
     Dosage: 150 UG, DAILY
  6. NEXIUM [Concomitant]
     Indication: IRRITABLE BOWEL SYNDROME
     Dosage: 20 MG, 2X/DAY
  7. NEXIUM [Concomitant]
     Indication: ULCER
  8. BELLADONNA EXTRACT [Concomitant]
     Indication: ULCER

REACTIONS (8)
  - ANKLE FRACTURE [None]
  - HYPOAESTHESIA [None]
  - FEELING JITTERY [None]
  - LIMB CRUSHING INJURY [None]
  - HEADACHE [None]
  - FALL [None]
  - LOSS OF CONSCIOUSNESS [None]
  - DIZZINESS [None]
